FAERS Safety Report 18870291 (Version 1)
Quarter: 2021Q1

REPORT INFORMATION
  Report Type: Spontaneous
  Country: DE (occurrence: DE)
  Receive Date: 20210210
  Receipt Date: 20210210
  Transmission Date: 20210420
  Serious: Yes (Life-Threatening, Hospitalization)
  Sender: FDA-Public Use
  Company Number: DE-RECORDATI-2021000430

PATIENT

DRUGS (5)
  1. UNSPECIFIED DACTINOMYCIN [Suspect]
     Active Substance: DACTINOMYCIN
     Indication: CHORIOCARCINOMA
  2. METHOTREXATE. [Suspect]
     Active Substance: METHOTREXATE
     Indication: CHORIOCARCINOMA
  3. CYCLOPHOSPHAMIDE. [Suspect]
     Active Substance: CYCLOPHOSPHAMIDE
     Indication: CHORIOCARCINOMA
  4. ONCOVIN [Suspect]
     Active Substance: VINCRISTINE SULFATE
     Indication: CHORIOCARCINOMA
  5. ETOPOSIDE. [Suspect]
     Active Substance: ETOPOSIDE
     Indication: CHORIOCARCINOMA

REACTIONS (1)
  - Acute respiratory distress syndrome [Recovered/Resolved]
